FAERS Safety Report 8293905-5 (Version None)
Quarter: 2012Q2

REPORT INFORMATION
  Report Type: 
  Country: None (occurrence: None)
  Receive Date: 20120418
  Receipt Date: 20120416
  Transmission Date: 20120825
  Serious: No
  Sender: FDA-Public Use
  Company Number: US-PFIZER INC-2012094109

PATIENT
  Sex: Male
  Weight: 65 kg

DRUGS (4)
  1. XALATAN [Concomitant]
     Indication: GLAUCOMA
     Dosage: UNK
     Route: 047
  2. FLECTOR [Suspect]
     Indication: ARTHRALGIA
     Dosage: UNK
     Route: 061
     Dates: start: 20120401
  3. ALPHAGAN P [Concomitant]
     Indication: GLAUCOMA
     Dosage: UNK
     Route: 047
  4. TRUSOPT [Concomitant]
     Indication: GLAUCOMA
     Dosage: UNK
     Route: 047

REACTIONS (2)
  - DRUG INEFFECTIVE [None]
  - EXPIRED DRUG ADMINISTERED [None]
